FAERS Safety Report 24646605 (Version 3)
Quarter: 2025Q3

REPORT INFORMATION
  Report Type: Report from Study
  Country: EU (occurrence: EU)
  Receive Date: 20241121
  Receipt Date: 20250810
  Transmission Date: 20251020
  Serious: Yes (Hospitalization, Other)
  Sender: ALEXION PHARMACEUTICALS
  Company Number: None

PATIENT
  Age: 48 Year
  Sex: Female
  Weight: 59 kg

DRUGS (1)
  1. OLAPARIB [Suspect]
     Active Substance: OLAPARIB
     Indication: Breast cancer
     Dates: start: 20240123, end: 20240801

REACTIONS (3)
  - Pyrexia [Recovered/Resolved]
  - Pancytopenia [Recovering/Resolving]
  - Multisystem inflammatory syndrome in adults [Recovered/Resolved]

NARRATIVE: CASE EVENT DATE: 20240628
